FAERS Safety Report 9980323 (Version 3)
Quarter: 2014Q1

REPORT INFORMATION
  Report Type: Spontaneous
  Country: JP (occurrence: JP)
  Receive Date: 20140307
  Receipt Date: 20140319
  Transmission Date: 20141002
  Serious: Yes (Hospitalization, Other)
  Sender: FDA-Public Use
  Company Number: JP-ROCHE-1348509

PATIENT
  Age: 58 Year
  Sex: Female
  Weight: 53 kg

DRUGS (12)
  1. XELODA [Suspect]
     Indication: RECTAL CANCER RECURRENT
     Dosage: IT IS ONE ADMINISTERING WEEKLY HOLIDAY MEDICINE FOR TWO WEEKS.
     Route: 048
     Dates: start: 20100813, end: 20110209
  2. XELODA [Suspect]
     Route: 048
     Dates: start: 20131218, end: 20140101
  3. AVASTIN [Suspect]
     Indication: RECTAL CANCER RECURRENT
     Route: 041
     Dates: start: 20121017, end: 20130410
  4. AVASTIN [Suspect]
     Route: 041
     Dates: start: 20131218, end: 20140205
  5. ELPLAT [Suspect]
     Indication: RECTAL CANCER RECURRENT
     Route: 041
     Dates: start: 20100813, end: 20110201
  6. ELPLAT [Suspect]
     Route: 041
     Dates: start: 20130605, end: 20130830
  7. ELPLAT [Suspect]
     Route: 041
     Dates: start: 20131218, end: 20140115
  8. IRINOTECAN HYDROCHLORIDE [Suspect]
     Indication: RECTAL CANCER RECURRENT
     Dosage: DOSAGE IS UNCERTAIN.
     Route: 041
     Dates: start: 20110508, end: 20110826
  9. IRINOTECAN HYDROCHLORIDE [Suspect]
     Indication: INTERSTITIAL LUNG DISEASE
     Route: 041
     Dates: start: 20121017, end: 20130429
  10. STIVARGA [Suspect]
     Indication: RECTAL CANCER RECURRENT
     Dosage: DOSAGE IS UNCERTAIN.
     Route: 048
     Dates: start: 20130925, end: 20131016
  11. CALCIUM LEVOFOLINATE [Concomitant]
  12. 5-FU [Concomitant]

REACTIONS (5)
  - Infusion related reaction [Recovered/Resolved]
  - Interstitial lung disease [Recovering/Resolving]
  - Sinusitis [Recovering/Resolving]
  - Hepatic function abnormal [Recovering/Resolving]
  - Myalgia [Recovering/Resolving]
